FAERS Safety Report 20544031 (Version 1)
Quarter: 2022Q1

REPORT INFORMATION
  Report Type: Report from Study
  Country: US (occurrence: US)
  Receive Date: 20220303
  Receipt Date: 20220303
  Transmission Date: 20220423
  Serious: Yes (Hospitalization)
  Sender: FDA-Public Use
  Company Number: US-SAMOHPHARM-2022000758

PATIENT

DRUGS (1)
  1. CARBAGLU [Suspect]
     Active Substance: CARGLUMIC ACID
     Indication: Methylmalonic aciduria
     Dosage: 400 MILLIGRAM, BID

REACTIONS (3)
  - Hospitalisation [Recovered/Resolved]
  - Infantile spitting up [Unknown]
  - Gastrointestinal disorder [Recovered/Resolved]
